FAERS Safety Report 10438282 (Version 2)
Quarter: 2014Q4

REPORT INFORMATION
  Report Type: Report from Study
  Country: US (occurrence: US)
  Receive Date: 20140908
  Receipt Date: 20141003
  Transmission Date: 20150528
  Serious: Yes (Hospitalization)
  Sender: FDA-Public Use
  Company Number: US-GLAXOSMITHKLINE-A1087363A

PATIENT
  Age: 46 Year
  Sex: Female

DRUGS (4)
  1. GSK1120212 [Suspect]
     Active Substance: TRAMETINIB
     Indication: CERVIX CARCINOMA
     Dosage: 1.5MG PER DAY
     Route: 048
     Dates: start: 20140411, end: 20140828
  2. GSK2141795 [Suspect]
     Active Substance: UPROSERTIB
     Indication: CERVIX CARCINOMA
     Dosage: 50MG PER DAY
     Route: 048
     Dates: start: 20140411, end: 20140828
  3. LIDOCAINE + DIPHENHYDRAMINE + ALUMINUM HYDROXIDE + MAGNESIUM HYDR [Concomitant]
  4. OXYCODONE [Concomitant]
     Active Substance: OXYCODONE

REACTIONS (1)
  - Embolism [Not Recovered/Not Resolved]

NARRATIVE: CASE EVENT DATE: 20140828
